FAERS Safety Report 23917967 (Version 1)
Quarter: 2024Q2

REPORT INFORMATION
  Report Type: Spontaneous
  Country: FR (occurrence: FR)
  Receive Date: 20240530
  Receipt Date: 20240530
  Transmission Date: 20240715
  Serious: Yes (Death, Life-Threatening, Hospitalization, Other)
  Sender: FDA-Public Use
  Company Number: FR-AMGEN-FRASP2024103288

PATIENT
  Age: 60 Year
  Sex: Male

DRUGS (5)
  1. PEGFILGRASTIM [Suspect]
     Active Substance: PEGFILGRASTIM
     Indication: Prophylaxis
     Dosage: UNK
     Route: 065
  2. FLUOROURACIL [Concomitant]
     Active Substance: FLUOROURACIL
     Indication: Gastric adenoma
     Dosage: UNK, REDUCED OF 50% (1300 INSTEAD OF 2600 MG/M2 IN 24-HOUR INFUSION),
     Route: 065
  3. LEUCOVORIN [Concomitant]
     Active Substance: LEUCOVORIN\LEUCOVORIN CALCIUM
     Indication: Gastric adenoma
     Dosage: 200 MILLIGRAM/SQ. METER
  4. OXALIPLATIN [Concomitant]
     Active Substance: OXALIPLATIN
     Indication: Gastric adenoma
     Dosage: 85 MILLIGRAM/SQ. METER
  5. DOCETAXEL [Concomitant]
     Active Substance: DOCETAXEL\DOCETAXEL ANHYDROUS
     Indication: Gastric adenoma
     Dosage: 50 MILLIGRAM/SQ. METER

REACTIONS (11)
  - Death [Fatal]
  - Respiratory failure [Unknown]
  - Pneumonia aspiration [Unknown]
  - Mucosal inflammation [Unknown]
  - Dyspepsia [Unknown]
  - Febrile neutropenia [Unknown]
  - Fatigue [Unknown]
  - Dysphagia [Unknown]
  - Diarrhoea [Unknown]
  - Odynophagia [Unknown]
  - Vomiting [Unknown]
